FAERS Safety Report 9669999 (Version 1)
Quarter: 2013Q4

REPORT INFORMATION
  Report Type: Spontaneous
  Country: FR (occurrence: FR)
  Receive Date: 20131105
  Receipt Date: 20131105
  Transmission Date: 20140711
  Serious: Yes (Death, Other)
  Sender: FDA-Public Use
  Company Number: FR-ELI_LILLY_AND_COMPANY-FR201310009789

PATIENT
  Age: 82 Year
  Sex: Female

DRUGS (2)
  1. GEMZAR [Suspect]
     Indication: PRODUCT USED FOR UNKNOWN INDICATION
     Dosage: UNK
     Route: 065
     Dates: start: 201303, end: 20130724
  2. HERCEPTIN [Suspect]
     Indication: PRODUCT USED FOR UNKNOWN INDICATION
     Dosage: UNK
     Route: 065
     Dates: start: 201303, end: 20130717

REACTIONS (4)
  - Cardiac failure [Fatal]
  - Renal failure [Unknown]
  - Right ventricular dysfunction [Unknown]
  - Drug tolerance decreased [Unknown]
